FAERS Safety Report 8588399-6 (Version None)
Quarter: 2012Q3

REPORT INFORMATION
  Report Type: 
  Country: None (occurrence: None)
  Receive Date: 20120813
  Receipt Date: 20120806
  Transmission Date: 20120928
  Serious: Yes (Hospitalization)
  Sender: FDA-Public Use
  Company Number: JP-AMGEN-JPNCT2012050134

PATIENT
  Age: 67 Year
  Sex: Female
  Weight: 47 kg

DRUGS (5)
  1. TAXOTERE [Concomitant]
     Indication: BREAST CANCER
     Dosage: 75 MG/M2, QD
     Route: 041
     Dates: start: 20111129
  2. DECADRON PHOSPHATE [Concomitant]
     Indication: PREMEDICATION
     Dosage: 2 MG, BID
     Route: 048
     Dates: start: 20111220, end: 20111222
  3. DEXAMETHASONE SODIUM PHOSPHATE [Concomitant]
     Indication: PREMEDICATION
     Dosage: 6.6 MG, QD
     Route: 040
     Dates: start: 20111220, end: 20111220
  4. CYCLOPHOSPHAMIDE [Concomitant]
     Indication: BREAST CANCER
     Dosage: 600 MG/M2, QD
     Route: 041
     Dates: start: 20111129
  5. PEGFILGRASTIM [Suspect]
     Indication: CHEMOTHERAPY
     Dosage: UNK
     Route: 058
     Dates: start: 20111130

REACTIONS (1)
  - ILEUS [None]
